FAERS Safety Report 23379960 (Version 2)
Quarter: 2024Q1

REPORT INFORMATION
  Report Type: Report from Study
  Country: US (occurrence: US)
  Receive Date: 20240109
  Receipt Date: 20240304
  Transmission Date: 20240410
  Serious: No
  Sender: FDA-Public Use
  Company Number: US-ABBVIE-5484394

PATIENT
  Sex: Female
  Weight: 74 kg

DRUGS (4)
  1. HUMIRA [Suspect]
     Active Substance: ADALIMUMAB
     Indication: Gastrointestinal inflammation
     Dosage: FORM STRENGTH 40 MG, TO BE STARTEDAFTER INDUCTION
     Route: 058
     Dates: start: 202308
  2. HUMIRA [Suspect]
     Active Substance: ADALIMUMAB
     Indication: Colitis
     Dosage: FORM STRENGTH 40 MG
     Route: 058
  3. LARIN 1/20 [Concomitant]
     Active Substance: ETHINYL ESTRADIOL\NORETHINDRONE ACETATE
     Indication: Product used for unknown indication
  4. PREDNISONE [Concomitant]
     Active Substance: PREDNISONE
     Indication: Product used for unknown indication

REACTIONS (6)
  - Diarrhoea haemorrhagic [Recovering/Resolving]
  - Taste disorder [Recovered/Resolved]
  - Middle insomnia [Recovering/Resolving]
  - Therapeutic product effect incomplete [Recovering/Resolving]
  - Abdominal pain upper [Not Recovered/Not Resolved]
  - Frequent bowel movements [Recovering/Resolving]

NARRATIVE: CASE EVENT DATE: 20230101
